FAERS Safety Report 16313894 (Version 3)
Quarter: 2019Q3

REPORT INFORMATION
  Report Type: Spontaneous
  Country: US (occurrence: US)
  Receive Date: 20190515
  Receipt Date: 20190801
  Transmission Date: 20191004
  Serious: Yes (Death)
  Sender: FDA-Public Use
  Company Number: US-PFIZER INC-2019206424

PATIENT
  Age: 69 Year
  Sex: Female

DRUGS (2)
  1. XALKORI [Suspect]
     Active Substance: CRIZOTINIB
     Dosage: 250 MG, 2X/DAY
     Route: 048
     Dates: start: 20190228, end: 20190408
  2. XALKORI [Suspect]
     Active Substance: CRIZOTINIB
     Indication: NON-SMALL CELL LUNG CANCER
     Dosage: 250 MG, UNK

REACTIONS (5)
  - Haemoptysis [Recovered/Resolved with Sequelae]
  - Neoplasm progression [Fatal]
  - Respiration abnormal [Unknown]
  - Cough [Recovered/Resolved with Sequelae]
  - Chest discomfort [Unknown]

NARRATIVE: CASE EVENT DATE: 20190404
